FAERS Safety Report 12728033 (Version 5)
Quarter: 2019Q2

REPORT INFORMATION
  Report Type: Spontaneous
  Country: BR (occurrence: BR)
  Receive Date: 20160909
  Receipt Date: 20190627
  Transmission Date: 20190711
  Serious: Yes (Other)
  Sender: FDA-Public Use
  Company Number: BR-REGENERON PHARMACEUTICALS, INC.-2016-20862

PATIENT

DRUGS (4)
  1. EYLEA [Suspect]
     Active Substance: AFLIBERCEPT
     Indication: NEOVASCULAR AGE-RELATED MACULAR DEGENERATION
     Dosage: RIGHT EYE,  (TOTAL OF 5 INJECTIONS)
     Route: 031
  2. POVIDONE [Concomitant]
     Active Substance: POVIDONE
     Indication: PROPHYLAXIS
  3. EYLEA [Interacting]
     Active Substance: AFLIBERCEPT
     Dosage: RIGHT EYE, LAST INJECTION PRIOR TO THE EVENT
     Route: 031
     Dates: start: 20160408, end: 20160408
  4. VIGAMOX [Concomitant]
     Active Substance: MOXIFLOXACIN HYDROCHLORIDE
     Indication: ANTIBIOTIC PROPHYLAXIS

REACTIONS (7)
  - Syringe issue [Unknown]
  - Vitritis [Unknown]
  - Iridocyclitis [Recovered/Resolved]
  - Drug-device interaction [Unknown]
  - Multiple use of single-use product [Unknown]
  - Eye inflammation [Recovered/Resolved]
  - Ocular procedural complication [Unknown]

NARRATIVE: CASE EVENT DATE: 2016
